FAERS Safety Report 6717273-2 (Version None)
Quarter: 2010Q2

REPORT INFORMATION
  Report Type: 
  Country: None (occurrence: None)
  Receive Date: 20100505
  Receipt Date: 20100426
  Transmission Date: 20101027
  Serious: Yes (Other)
  Sender: FDA-Public Use
  Company Number: 2010SP023901

PATIENT
  Age: 31 Year
  Sex: Female

DRUGS (6)
  1. SAPHRIS [Suspect]
     Indication: DRUG USE FOR UNKNOWN INDICATION
     Dosage: 5 MG; BID, 15 MG; QD
     Dates: start: 20100401, end: 20100401
  2. SAPHRIS [Suspect]
     Indication: DRUG USE FOR UNKNOWN INDICATION
     Dosage: 5 MG; BID, 15 MG; QD
     Dates: start: 20100401, end: 20100424
  3. INVEGA [Concomitant]
  4. KLONOPIN [Concomitant]
  5. AMBIEN [Concomitant]
  6. BUSPAR [Concomitant]

REACTIONS (1)
  - PARANOIA [None]
